FAERS Safety Report 10101969 (Version 1)
Quarter: 2014Q2

REPORT INFORMATION
  Report Type: Spontaneous
  Country: US (occurrence: None)
  Receive Date: 20140423
  Receipt Date: 20140423
  Transmission Date: 20141212
  Serious: No
  Sender: FDA-Public Use
  Company Number: None

PATIENT
  Age: 14 Year
  Sex: Female
  Weight: 128.37 kg

DRUGS (1)
  1. TOPOMAX [Suspect]
     Indication: DRUG THERAPY
     Dates: start: 20140204

REACTIONS (1)
  - No adverse event [None]
